FAERS Safety Report 24256417 (Version 1)
Quarter: 2024Q3

REPORT INFORMATION
  Report Type: Spontaneous
  Country: JP (occurrence: JP)
  Receive Date: 20240828
  Receipt Date: 20240828
  Transmission Date: 20241017
  Serious: Yes (Other)
  Sender: TAKEDA
  Company Number: JP-TAKEDA-2024TJP012500

PATIENT
  Age: 65 Year
  Sex: Male
  Weight: 54.9 kg

DRUGS (2)
  1. ALUNBRIG [Suspect]
     Active Substance: BRIGATINIB
     Indication: Lung neoplasm malignant
     Dosage: 180 MILLIGRAM, QD
     Route: 048
     Dates: start: 20230914
  2. ALUNBRIG [Suspect]
     Active Substance: BRIGATINIB
     Dosage: 120 MILLIGRAM
     Route: 048
     Dates: start: 20240209

REACTIONS (5)
  - Carcinoembryonic antigen increased [Unknown]
  - Muscle spasms [Unknown]
  - Malaise [Unknown]
  - Oedema peripheral [Unknown]
  - Blood creatine phosphokinase increased [Unknown]
